FAERS Safety Report 8361727-2 (Version None)
Quarter: 2012Q2

REPORT INFORMATION
  Report Type: 
  Country: None (occurrence: None)
  Receive Date: 20120515
  Receipt Date: 20120508
  Transmission Date: 20120825
  Serious: Yes (Life-Threatening)
  Sender: FDA-Public Use
  Company Number: ES-FRI-1000030428

PATIENT
  Age: 82 Year
  Sex: Male

DRUGS (6)
  1. CARDURA [Concomitant]
     Indication: BENIGN PROSTATIC HYPERPLASIA
     Dosage: 8 MG
     Route: 048
     Dates: start: 20101001
  2. SIMVASTATIN [Concomitant]
     Indication: HYPERLIPIDAEMIA
     Dosage: 40 MG
     Route: 048
  3. ACIDO ACETILSALICILICO [Concomitant]
     Indication: ISCHAEMIC CARDIOMYOPATHY
     Dosage: 100 MG
     Route: 048
  4. OMACOR [Concomitant]
     Indication: HYPERLIPIDAEMIA
     Dosage: 2 FD
     Route: 048
     Dates: start: 20060701, end: 20110917
  5. NEBIVOLOL [Suspect]
     Indication: ISCHAEMIC CARDIOMYOPATHY
     Dosage: 5 MG
     Route: 048
     Dates: start: 20110913, end: 20110917
  6. HYDRAPRES [Concomitant]
     Indication: HYPERTENSION
     Dosage: 25 MG
     Route: 048
     Dates: start: 20091101, end: 20110913

REACTIONS (2)
  - ATRIAL FIBRILLATION [None]
  - CARDIAC FAILURE [None]
